FAERS Safety Report 15988437 (Version 5)
Quarter: 2019Q2

REPORT INFORMATION
  Report Type: Report from Study
  Country: US (occurrence: US)
  Receive Date: 20190221
  Receipt Date: 20190528
  Transmission Date: 20190711
  Serious: Yes (Hospitalization, Other)
  Sender: FDA-Public Use
  Company Number: US-ROCHE-2268101

PATIENT
  Age: 46 Year
  Sex: Male

DRUGS (2)
  1. BEVACIZUMAB. [Suspect]
     Active Substance: BEVACIZUMAB
     Indication: NEOPLASM
     Dosage: BY VEIN EVERY 3 WEEKS ON DAY 1 OF EACH 21-DAY CYCLE.
     Route: 042
  2. ATEZOLIZUMAB. [Suspect]
     Active Substance: ATEZOLIZUMAB
     Indication: NEOPLASM
     Dosage: BY VEIN ON DAY 1 OF EACH 21-DAY CYCLE. ATEZOLIZUMAB ADMINISTERED PRIOR TO BEVACIZUMAB, WITH A MINIMU
     Route: 042

REACTIONS (4)
  - Pyrexia [Unknown]
  - Intra-abdominal haemorrhage [Recovered/Resolved]
  - Abdominal pain [Unknown]
  - Abdominal pain [Recovering/Resolving]

NARRATIVE: CASE EVENT DATE: 20190214
